FAERS Safety Report 6044170-0 (Version None)
Quarter: 2009Q1

REPORT INFORMATION
  Report Type: 
  Country: None (occurrence: None)
  Receive Date: 20090115
  Receipt Date: 20090115
  Transmission Date: 20090719
  Serious: No
  Sender: FDA-Public Use
  Company Number: None

PATIENT
  Sex: Female

DRUGS (7)
  1. AREDIA [Suspect]
     Indication: BREAST CANCER METASTATIC
     Dosage: 90 MG MONTHLY IV
     Route: 042
     Dates: start: 20020101, end: 20030101
  2. ZOMETA [Suspect]
     Indication: BREAST CANCER METASTATIC
     Dosage: 4 MG MONTHLY IV
     Route: 042
     Dates: start: 20051001, end: 20060301
  3. TAXOL [Concomitant]
  4. VERAPAMIL [Concomitant]
  5. LIPITOR [Concomitant]
  6. NITROGLYCERIN [Concomitant]
  7. FASLODEX [Concomitant]

REACTIONS (3)
  - BONE DISORDER [None]
  - IMPLANT SITE REACTION [None]
  - JAW DISORDER [None]
